FAERS Safety Report 17882950 (Version 2)
Quarter: 2020Q2

REPORT INFORMATION
  Report Type: Spontaneous
  Country: DE (occurrence: DE)
  Receive Date: 20200610
  Receipt Date: 20200625
  Transmission Date: 20200714
  Serious: No
  Sender: FDA-Public Use
  Company Number: DE-TAKEDA-2020TUS025475

PATIENT
  Age: 27 Year
  Sex: Female
  Weight: 58 kg

DRUGS (5)
  1. FOSTER                             /00500401/ [Concomitant]
     Active Substance: PIROXICAM
     Indication: ASTHMA
     Dosage: UNK
     Dates: start: 2019
  2. PENTASA [Concomitant]
     Active Substance: MESALAMINE
     Indication: CROHN^S DISEASE
     Dosage: 3 GRAM
     Dates: start: 2018
  3. AZATHIOPRINE. [Concomitant]
     Active Substance: AZATHIOPRINE
     Indication: CROHN^S DISEASE
     Dosage: 150 MILLIGRAM
     Dates: start: 2019
  4. ENTYVIO [Suspect]
     Active Substance: VEDOLIZUMAB
     Indication: CROHN^S DISEASE
     Dosage: 300 MILLIGRAM
     Route: 065
     Dates: start: 20200525
  5. CORTIMENT                          /00028601/ [Concomitant]
     Active Substance: HYDROCORTISONE
     Dosage: 9 MILLIGRAM
     Dates: end: 20200512

REACTIONS (2)
  - Anal fistula [Unknown]
  - Intentional product use issue [Unknown]
